FAERS Safety Report 21865332 (Version 1)
Quarter: 2023Q1

REPORT INFORMATION
  Report Type: Spontaneous
  Country: JP (occurrence: JP)
  Receive Date: 20230116
  Receipt Date: 20230116
  Transmission Date: 20230418
  Serious: Yes (Life-Threatening, Hospitalization, Other)
  Sender: FDA-Public Use
  Company Number: JP-BAYER-2021A233304

PATIENT
  Age: 77 Year
  Sex: Male

DRUGS (2)
  1. XARELTO [Interacting]
     Active Substance: RIVAROXABAN
     Indication: Atrial fibrillation
     Dosage: DAILY DOSE 10 MG
     Route: 048
  2. CLOPIDOGREL [Interacting]
     Active Substance: CLOPIDOGREL BISULFATE
     Indication: Peripheral arterial occlusive disease
     Dosage: DAILY DOSE 75 MG
     Route: 048

REACTIONS (6)
  - Shock haemorrhagic [Recovered/Resolved]
  - Haemoperitoneum [Recovered/Resolved]
  - Labelled drug-drug interaction medication error [Unknown]
  - Vascular pseudoaneurysm [Recovered/Resolved]
  - Arterial haemorrhage [Recovered/Resolved]
  - Condition aggravated [Recovered/Resolved]
